FAERS Safety Report 4810628-2 (Version None)
Quarter: 2005Q4

REPORT INFORMATION
  Report Type: 
  Country: None (occurrence: None)
  Receive Date: 20051024
  Receipt Date: 20050919
  Transmission Date: 20060501
  Serious: Yes (Death)
  Sender: FDA-Public Use
  Company Number: AND_0195_2005

PATIENT
  Age: 47 Year

DRUGS (3)
  1. ACETAMINOPHEN AND HYDROCODONE BITARTRATE [Suspect]
     Dosage: DF
  2. ASPIRIN [Suspect]
     Dosage: DF
  3. ACETAMINOPHEN/DEXTROMETHORPHAN/DOXYLAMINE/PSEUDOEPHEDRINE [Suspect]
     Dosage: DF

REACTIONS (2)
  - COMPLETED SUICIDE [None]
  - MULTIPLE DRUG OVERDOSE [None]
